FAERS Safety Report 8008154-5 (Version None)
Quarter: 2011Q4

REPORT INFORMATION
  Report Type: 
  Country: None (occurrence: None)
  Receive Date: 20111227
  Receipt Date: 20111221
  Transmission Date: 20120403
  Serious: Yes (Death, Other)
  Sender: FDA-Public Use
  Company Number: PHHY2011FR112017

PATIENT
  Age: 61 Year
  Sex: Male

DRUGS (7)
  1. CIDOFOVIR [Concomitant]
     Dosage: 5 MG/KG, EVERY OTHER WEEK
  2. MYCOPHENOLATE MOFETIL [Concomitant]
     Dosage: 15 MG/KG, BID
  3. CIDOFOVIR [Concomitant]
     Dosage: 5 MG/KG, ONCE A WEEK FOR 2 WEEKS
  4. FOSCARNET [Concomitant]
     Dosage: 180 MG/KG, PER 24HR
  5. FLUDARABINE PHOSPHATE [Concomitant]
     Dosage: 40 MG/M2,
  6. CYCLOSPORINE [Suspect]
     Indication: STEM CELL TRANSPLANT
     Dosage: 6.25 MG/KG, BID
  7. CYCLOPHOSPHAMIDE [Concomitant]
     Dosage: 50 MG/KG,

REACTIONS (15)
  - COMA [None]
  - MYOCARDITIS [None]
  - NEUROLOGICAL DECOMPENSATION [None]
  - ACUTE MYELOID LEUKAEMIA [None]
  - RENAL FAILURE ACUTE [None]
  - INTERSTITIAL LUNG DISEASE [None]
  - ASPERGILLOSIS [None]
  - PYRAMIDAL TRACT SYNDROME [None]
  - RESTLESSNESS [None]
  - CONVULSION [None]
  - DISORIENTATION [None]
  - ENCEPHALITIS HERPES [None]
  - SOMNOLENCE [None]
  - ALEXIA [None]
  - BRAIN INJURY [None]
